FAERS Safety Report 17747199 (Version 2)
Quarter: 2020Q2

REPORT INFORMATION
  Report Type: Spontaneous
  Country: GB (occurrence: GB)
  Receive Date: 20200505
  Receipt Date: 20200520
  Transmission Date: 20200714
  Serious: Yes (Other)
  Sender: FDA-Public Use
  Company Number: GB-PFIZER INC-2020176763

PATIENT
  Age: 55 Year
  Sex: Male

DRUGS (1)
  1. LORVIQUA [Suspect]
     Active Substance: LORLATINIB
     Dosage: UNKNOWN DOSE
     Dates: start: 20200127

REACTIONS (3)
  - Blood bilirubin increased [Recovering/Resolving]
  - Cholelithiasis [Unknown]
  - Jaundice [Unknown]
